FAERS Safety Report 7731963-4 (Version None)
Quarter: 2011Q3

REPORT INFORMATION
  Report Type: 
  Country: None (occurrence: None)
  Receive Date: 20110906
  Receipt Date: 20110719
  Transmission Date: 20111222
  Serious: No
  Sender: FDA-Public Use
  Company Number: US-AMGEN-USASP2011036884

PATIENT
  Age: 82 Year
  Sex: Female

DRUGS (6)
  1. ALDAZIDE [Concomitant]
  2. PAXIL [Concomitant]
  3. PREMARIN [Concomitant]
  4. PROLIA [Suspect]
     Indication: OSTEOPOROSIS POSTMENOPAUSAL
     Dosage: 60 MG, Q6MO
     Dates: start: 20110622
  5. PROTONIX [Concomitant]
  6. VITAMIN D [Concomitant]

REACTIONS (6)
  - DERMATITIS CONTACT [None]
  - RASH MACULAR [None]
  - SWELLING FACE [None]
  - PIGMENTATION DISORDER [None]
  - EYE SWELLING [None]
  - EAR PRURITUS [None]
